FAERS Safety Report 9275168 (Version 1)
Quarter: 2013Q2

REPORT INFORMATION
  Report Type: Spontaneous
  Country: FR (occurrence: FR)
  Receive Date: 20130507
  Receipt Date: 20130507
  Transmission Date: 20140414
  Serious: Yes (Other)
  Sender: FDA-Public Use
  Company Number: FR-TEVA-377701ISR

PATIENT
  Age: 39 Year
  Sex: Female
  Weight: 57 kg

DRUGS (4)
  1. COPAXONE [Suspect]
     Indication: MULTIPLE SCLEROSIS
     Dosage: 1 DOSAGE FORMS DAILY; AUTOJECT AT 10 MM, MAKING A SKINFOLD
     Route: 058
     Dates: start: 20120102, end: 201304
  2. SEROPLEX [Concomitant]
     Indication: DEPRESSION
  3. CORTISON [Concomitant]
     Indication: ANKYLOSING SPONDYLITIS
     Dosage: IN CASE OF FIT
  4. UNSPECIFIED INTRA-UTERINE DEVICE [Concomitant]

REACTIONS (14)
  - Gouty arthritis [Recovered/Resolved]
  - Asphyxia [Recovered/Resolved]
  - Gouty arthritis [Recovered/Resolved]
  - Gouty arthritis [Unknown]
  - Malaise [Recovered/Resolved]
  - Hot flush [Recovered/Resolved]
  - Sense of oppression [Recovered/Resolved]
  - Injection site swelling [Not Recovered/Not Resolved]
  - Injection site pain [Recovered/Resolved]
  - Hyperhidrosis [Recovered/Resolved]
  - Feeling hot [Recovered/Resolved]
  - Dyspnoea [Recovered/Resolved]
  - Swelling face [Recovered/Resolved]
  - Erythema [Recovered/Resolved]
